FAERS Safety Report 5217417-8 (Version None)
Quarter: 2007Q1

REPORT INFORMATION
  Report Type: 
  Country: None (occurrence: None)
  Receive Date: 20070124
  Receipt Date: 20060215
  Transmission Date: 20070707
  Serious: No
  Sender: FDA-Public Use
  Company Number: US-GLAXOSMITHKLINE-A0593862A

PATIENT
  Age: 80 Year
  Sex: Female

DRUGS (9)
  1. PAXIL CR [Suspect]
     Dosage: 12.5MG PER DAY
     Route: 048
     Dates: start: 20050101
  2. FUROSEMIDE [Concomitant]
  3. DILTIAZEM HCL [Concomitant]
  4. AVINZA [Concomitant]
  5. AMBIEN [Concomitant]
  6. ACTOS [Concomitant]
  7. GABAPENTIN [Concomitant]
  8. AGGRENOX [Concomitant]
  9. POTASSIUM CHLORIDE [Concomitant]

REACTIONS (1)
  - MEDICATION RESIDUE [None]
